FAERS Safety Report 20080377 (Version 1)
Quarter: 2021Q4

REPORT INFORMATION
  Report Type: Spontaneous
  Country: DE (occurrence: DE)
  Receive Date: 20211117
  Receipt Date: 20211117
  Transmission Date: 20220304
  Serious: Yes (Hospitalization)
  Sender: FDA-Public Use
  Company Number: DE-ADRED-07216-01

PATIENT
  Age: 51 Year
  Sex: Female
  Weight: 71 kg

DRUGS (4)
  1. IBUPROFEN [Suspect]
     Active Substance: IBUPROFEN
     Indication: Product used for unknown indication
     Dosage: 800 MILLIGRAM
  2. VENLAFAXINE [Suspect]
     Active Substance: VENLAFAXINE HYDROCHLORIDE
     Indication: Product used for unknown indication
     Dosage: 150 MILLIGRAM
  3. PREGABALIN [Concomitant]
     Active Substance: PREGABALIN
     Dosage: 100 MILLIGRAM
  4. METAMIZOL                          /06276701/ [Concomitant]
     Dosage: UNK (40 TROPFEN, 1-1-1-1)

REACTIONS (9)
  - Anaemia [Unknown]
  - General physical health deterioration [Unknown]
  - Orthostatic intolerance [Unknown]
  - Haematochezia [Unknown]
  - Systemic infection [Unknown]
  - Nausea [Unknown]
  - Diarrhoea [Unknown]
  - Vomiting [Unknown]
  - Condition aggravated [Unknown]
